FAERS Safety Report 9764599 (Version 1)
Quarter: 2013Q4

REPORT INFORMATION
  Report Type: Spontaneous
  Country: GB (occurrence: GB)
  Receive Date: 20131217
  Receipt Date: 20131217
  Transmission Date: 20140711
  Serious: Yes (Other)
  Sender: FDA-Public Use
  Company Number: GB-ACCORD-020717

PATIENT
  Age: 21 Year
  Sex: Female

DRUGS (4)
  1. CLOBAZAM [Suspect]
     Indication: PRODUCT USED FOR UNKNOWN INDICATION
     Dosage: TOTAL DAILY DOSE: 10 (UNITS UNSPECIFIED)
  2. TOPIRAMATE [Suspect]
     Indication: PRODUCT USED FOR UNKNOWN INDICATION
     Dosage: TOTAL DAILY DOSE: 100 (UNITS UNSPECIFIED)
  3. KEPPRA [Suspect]
     Indication: PRODUCT USED FOR UNKNOWN INDICATION
     Dosage: TOTAL DAILY DOSE: 2500 (UNITS UNSPECIFIED)
  4. TEGRETOL RETARD [Suspect]
     Indication: PRODUCT USED FOR UNKNOWN INDICATION
     Dosage: TOTAL DAILY DOSE: 800 (UNITS UNSPECIFIED)

REACTIONS (3)
  - Convulsion [Unknown]
  - Drug intolerance [Recovered/Resolved]
  - Exposure during pregnancy [Unknown]
